FAERS Safety Report 4345333-2 (Version None)
Quarter: 2004Q2

REPORT INFORMATION
  Report Type: 
  Country: None (occurrence: None)
  Receive Date: 20040420
  Receipt Date: 20040405
  Transmission Date: 20050107
  Serious: Yes (Death, Life-Threatening)
  Sender: FDA-Public Use
  Company Number: BIVUS040005

PATIENT
  Age: 48 Year
  Sex: Female
  Weight: 116 kg

DRUGS (9)
  1. ANGIOMAX [Suspect]
     Indication: ANTICOAGULANT THERAPY
     Dosage: 17.3 CC, BOLUS, IV BOLUS
     Route: 040
     Dates: start: 20040202, end: 20040202
  2. LOVENOX [Suspect]
     Dosage: 80 MG, ONCE SUBCUTANEOUS
     Route: 058
     Dates: start: 20040202, end: 20040202
  3. INTEGREL (EPTIFIBATIDE) [Suspect]
     Dosage: 9.5 CC, HR INF, IV HR INF
     Route: 042
     Dates: start: 20040202, end: 20040202
  4. CLOPIDOGREL [Suspect]
     Dosage: 600 MG, ORAL
     Route: 048
     Dates: start: 20040202, end: 20040202
  5. CELLCEPT [Concomitant]
  6. PREDNISONE [Concomitant]
  7. ASPIRIN [Concomitant]
  8. CYCLOSPORINE [Concomitant]
  9. PLAVIX [Concomitant]

REACTIONS (10)
  - ACIDOSIS [None]
  - AGGRESSION [None]
  - AGITATION [None]
  - ANURIA [None]
  - CARDIAC PROCEDURE COMPLICATION [None]
  - DEVICE FAILURE [None]
  - DISSEMINATED INTRAVASCULAR COAGULATION [None]
  - HAEMATOCRIT DECREASED [None]
  - HAEMORRHAGE [None]
  - HYPOTENSION [None]
